FAERS Safety Report 5252389-1 (Version None)
Quarter: 2007Q1

REPORT INFORMATION
  Report Type: 
  Country: None (occurrence: None)
  Receive Date: 20070301
  Receipt Date: 20061205
  Transmission Date: 20070707
  Serious: Yes (Life-Threatening, Other)
  Sender: FDA-Public Use
  Company Number: US-BRISTOL-MYERS SQUIBB COMPANY-13546569

PATIENT
  Age: 30 Year
  Sex: Female
  Weight: 62 kg

DRUGS (9)
  1. TAXOL [Suspect]
     Indication: NON-SMALL CELL LUNG CANCER
     Route: 042
     Dates: start: 20060815, end: 20060815
  2. DECADRON [Concomitant]
     Route: 042
  3. ZOFRAN [Concomitant]
     Route: 042
  4. BENADRYL [Concomitant]
     Route: 042
  5. NARCAN [Concomitant]
     Route: 042
  6. ROCEPHIN [Concomitant]
     Route: 042
  7. VANCOMYCIN HYDROCHLORIDE [Concomitant]
     Route: 042
  8. GENTAMICIN [Concomitant]
     Route: 042
  9. ZOSYN [Concomitant]
     Route: 042

REACTIONS (1)
  - DYSPNOEA [None]
